FAERS Safety Report 9282827 (Version 1)
Quarter: 2013Q2

REPORT INFORMATION
  Report Type: Spontaneous
  Country: US (occurrence: US)
  Receive Date: 20130510
  Receipt Date: 20130510
  Transmission Date: 20140414
  Serious: Yes (Hospitalization)
  Sender: FDA-Public Use
  Company Number: US-BAYER-2013-055992

PATIENT
  Sex: Female

DRUGS (1)
  1. STIVARGA [Suspect]
     Indication: COLORECTAL CANCER
     Dosage: 4 DF, QD
     Route: 048

REACTIONS (4)
  - Stomatitis [None]
  - Blood pressure decreased [None]
  - Oedema peripheral [None]
  - Ascites [None]
